FAERS Safety Report 7639432-7 (Version None)
Quarter: 2011Q3

REPORT INFORMATION
  Report Type: 
  Country: None (occurrence: None)
  Receive Date: 20110727
  Receipt Date: 20110708
  Transmission Date: 20111222
  Serious: Yes (Hospitalization)
  Sender: FDA-Public Use
  Company Number: US-GLAXOSMITHKLINE-A0869128A

PATIENT
  Age: 62 Year
  Sex: Male

DRUGS (6)
  1. AVANDIA [Suspect]
     Indication: DIABETES MELLITUS
     Dosage: 4MG PER DAY
     Route: 048
     Dates: start: 20020325, end: 20020820
  2. ALTACE [Concomitant]
  3. ZOCOR [Concomitant]
  4. METOPROLOL TARTRATE [Concomitant]
  5. INSULIN [Concomitant]
  6. RANITIDINE [Concomitant]

REACTIONS (4)
  - DEPRESSION [None]
  - CARDIAC FAILURE CONGESTIVE [None]
  - ANXIETY [None]
  - CEREBROVASCULAR ACCIDENT [None]
